FAERS Safety Report 8613468-1 (Version None)
Quarter: 2012Q3

REPORT INFORMATION
  Report Type: 
  Country: None (occurrence: None)
  Receive Date: 20120823
  Receipt Date: 20120809
  Transmission Date: 20120928
  Serious: Yes (Hospitalization)
  Sender: FDA-Public Use
  Company Number: JP-MYLANLABS-2012S1016506

PATIENT
  Age: 64 Year
  Sex: Female
  Weight: 55 kg

DRUGS (5)
  1. FLUOROURACIL [Suspect]
     Indication: COLORECTAL CANCER METASTATIC
     Dosage: 600MG RAPID INJECTION; 1ST COURSE: D9; 2ND COURSE: D23; MFOLFOX6
     Route: 042
  2. LEUCOVORIN CALCIUM [Suspect]
     Indication: COLORECTAL CANCER METASTATIC
     Dosage: 300MG; 1ST COURSE: D9; 2ND COURSE: D23; MFOLFOX6
     Route: 041
  3. OXALIPLATIN [Suspect]
     Indication: COLORECTAL CANCER METASTATIC
     Dosage: 130MG; 1ST COURSE: D9; 2ND COURSE: D23; MFOLFOX6
     Route: 041
  4. BEVACIZUMAB [Suspect]
     Indication: COLORECTAL CANCER METASTATIC
     Dosage: 280MG; 1ST COURSE: D9; 2ND COURSE: D23
     Route: 041
  5. FLUOROURACIL [Suspect]
     Dosage: 3600MG CONSTANT INFUSION; 1ST COURSE: D9; 2ND COURSE: D23; MFOLFOX6

REACTIONS (4)
  - INTESTINAL STENOSIS [None]
  - FIBROSIS [None]
  - ILEUS [None]
  - TUMOUR NECROSIS [None]
